FAERS Safety Report 8463184-4 (Version None)
Quarter: 2012Q2

REPORT INFORMATION
  Report Type: 
  Country: None (occurrence: None)
  Receive Date: 20120323
  Receipt Date: 20110921
  Transmission Date: 20120825
  Serious: Yes (Hospitalization, Other)
  Sender: FDA-Public Use
  Company Number: 163-21880-11092824

PATIENT
  Age: 69 Year
  Sex: Male

DRUGS (10)
  1. DECADRON [Concomitant]
  2. CALCITRIOL [Concomitant]
  3. K-TAB [Concomitant]
  4. ALLOPURINOL [Concomitant]
  5. LENALIDOMIDE [Suspect]
     Indication: MULTIPLE MYELOMA
     Dosage: 25 MG, X21D/28D, PO; 10 MG, Q0D X21D/28D, PO; 10 MG, QOD X21D/28D, PO
     Route: 048
     Dates: start: 20080301
  6. LENALIDOMIDE [Suspect]
     Indication: MULTIPLE MYELOMA
     Dosage: 25 MG, X21D/28D, PO; 10 MG, Q0D X21D/28D, PO; 10 MG, QOD X21D/28D, PO
     Route: 048
     Dates: start: 20110901
  7. LENALIDOMIDE [Suspect]
     Indication: MULTIPLE MYELOMA
     Dosage: 25 MG, X21D/28D, PO; 10 MG, Q0D X21D/28D, PO; 10 MG, QOD X21D/28D, PO
     Route: 048
     Dates: start: 20090101, end: 20110701
  8. CYANOCOBALAMIN [Concomitant]
  9. QUESTRAN [Concomitant]
  10. BICITRA (SHOHL'S SOLUTION) [Concomitant]

REACTIONS (4)
  - DEEP VEIN THROMBOSIS [None]
  - PNEUMONIA [None]
  - NEUTROPENIA [None]
  - RENAL FAILURE ACUTE [None]
